FAERS Safety Report 15120012 (Version 2)
Quarter: 2020Q4

REPORT INFORMATION
  Report Type: Report from Study
  Country: GB (occurrence: US)
  Receive Date: 20180709
  Receipt Date: 20201231
  Transmission Date: 20210113
  Serious: Yes (Other)
  Sender: FDA-Public Use
  Company Number: US-ASTELLAS-2018US030819

PATIENT
  Sex: Female

DRUGS (10)
  1. FLOMAX [Concomitant]
     Active Substance: TAMSULOSIN HYDROCHLORIDE
     Indication: PRODUCT USED FOR UNKNOWN INDICATION
     Dosage: 1 DF, ONCE DAILY (FOR 10 DAYS AFTER BREAKFAST)
     Route: 048
  2. ZOFRAN [Concomitant]
     Active Substance: ONDANSETRON HYDROCHLORIDE
     Indication: NAUSEA
     Dosage: 4 MG, EVERY 8 HOURS (2 TABLETS AS NEEDED FOR NAUSEA)
     Route: 065
  3. LORTAB [Concomitant]
     Active Substance: ACETAMINOPHEN\HYDROCODONE BITARTRATE
     Indication: PRODUCT USED FOR UNKNOWN INDICATION
     Dosage: UNK UNK, UNKNOWN FREQ.
     Route: 065
  4. MICRO-K [Concomitant]
     Active Substance: POTASSIUM CHLORIDE
     Indication: PRODUCT USED FOR UNKNOWN INDICATION
     Route: 065
  5. XANAX [Concomitant]
     Active Substance: ALPRAZOLAM
     Indication: PRODUCT USED FOR UNKNOWN INDICATION
     Dosage: 1 MG, THRICE DAILY (AS NEEDED)
     Route: 048
  6. ALPRAZOLAM. [Concomitant]
     Active Substance: ALPRAZOLAM
     Indication: PRODUCT USED FOR UNKNOWN INDICATION
     Dosage: UNK UNK, UNKNOWN FREQ.
     Route: 065
  7. KEFLEX [Concomitant]
     Active Substance: CEPHALEXIN
     Indication: PRODUCT USED FOR UNKNOWN INDICATION
     Dosage: UNK UNK, UNKNOWN FREQ.
     Route: 065
  8. ERLOTINIB [Suspect]
     Active Substance: ERLOTINIB
     Indication: MALIGNANT RESPIRATORY TRACT NEOPLASM
     Dosage: 100 MG, ONCE DAILY (PO QD)
     Route: 048
  9. XANAX [Concomitant]
     Active Substance: ALPRAZOLAM
     Dosage: 1 MG, THRICE DAILY (AS NEEDED)
     Route: 048
  10. COMPAZINE [Concomitant]
     Active Substance: PROCHLORPERAZINE MALEATE
     Indication: PRODUCT USED FOR UNKNOWN INDICATION
     Dosage: 10 MG, EVERY 6 HOURS (AS NEEDED)
     Route: 048

REACTIONS (4)
  - Pneumothorax [Unknown]
  - Pain [Unknown]
  - Dysphonia [Unknown]
  - Nausea [Unknown]
